FAERS Safety Report 19272635 (Version 1)
Quarter: 2021Q2

REPORT INFORMATION
  Report Type: Spontaneous
  Country: JP (occurrence: JP)
  Receive Date: 20210519
  Receipt Date: 20210519
  Transmission Date: 20210717
  Serious: Yes (Hospitalization, Other)
  Sender: FDA-Public Use
  Company Number: JP-TAIHO ONCOLOGY  INC-JPTT210183

PATIENT
  Age: 62 Year
  Sex: Male

DRUGS (3)
  1. MAGNESIUM OXIDE. [Concomitant]
     Active Substance: MAGNESIUM OXIDE
     Indication: CONSTIPATION
     Dosage: DETAILS NOT REPORTED
     Route: 048
  2. LINZESS [Concomitant]
     Active Substance: LINACLOTIDE
     Indication: CONSTIPATION
     Dosage: DETAILS NOT REPORTED
     Route: 048
  3. LONSURF [Suspect]
     Active Substance: TIPIRACIL HYDROCHLORIDE\TRIFLURIDINE
     Indication: COLORECTAL CANCER METASTATIC
     Dosage: DETAILS NOT REPORTED
     Route: 048
     Dates: start: 20210507

REACTIONS (3)
  - Malaise [Not Recovered/Not Resolved]
  - Diarrhoea [Not Recovered/Not Resolved]
  - Intestinal obstruction [Unknown]

NARRATIVE: CASE EVENT DATE: 20210509
